FAERS Safety Report 6550695-1 (Version None)
Quarter: 2010Q1

REPORT INFORMATION
  Report Type: 
  Country: None (occurrence: None)
  Receive Date: 20100125
  Receipt Date: 20090908
  Transmission Date: 20100710
  Serious: No
  Sender: FDA-Public Use
  Company Number: US-TYCO HEALTHCARE/MALLINCKRODT-T200901696

PATIENT
  Sex: Female

DRUGS (3)
  1. OPTIRAY 350 [Suspect]
     Indication: COMPUTERISED TOMOGRAM
     Dosage: 100 ML, SINGLE
     Route: 042
     Dates: start: 20090827, end: 20090827
  2. OPTIRAY 350 [Suspect]
     Indication: UROGRAM
  3. METFORMIN [Concomitant]
     Indication: DIABETES MELLITUS

REACTIONS (3)
  - HYPOAESTHESIA [None]
  - PRURITUS [None]
  - URTICARIA [None]
